FAERS Safety Report 9459592 (Version 1)
Quarter: 2013Q3

REPORT INFORMATION
  Report Type: Spontaneous
  Country: US (occurrence: US)
  Receive Date: 20130815
  Receipt Date: 20130815
  Transmission Date: 20140515
  Serious: No
  Sender: FDA-Public Use
  Company Number: US-BAYER-2013-097330

PATIENT
  Age: 56 Year
  Sex: Female

DRUGS (1)
  1. STIVARGA [Suspect]
     Indication: COLON CANCER
     Dosage: 160 MG, QD
     Dates: start: 20130720, end: 20130803

REACTIONS (4)
  - Rash generalised [None]
  - Pruritus [None]
  - Headache [None]
  - Palmar-plantar erythrodysaesthesia syndrome [None]
